FAERS Safety Report 24956057 (Version 1)
Quarter: 2025Q1

REPORT INFORMATION
  Report Type: Spontaneous
  Country: FR (occurrence: FR)
  Receive Date: 20250211
  Receipt Date: 20250211
  Transmission Date: 20250408
  Serious: Yes (Other)
  Sender: JOHNSON AND JOHNSON
  Company Number: None

PATIENT
  Age: 43 Year
  Sex: Male
  Weight: 82 kg

DRUGS (5)
  1. SIMPONI [Suspect]
     Active Substance: GOLIMUMAB
     Indication: Colitis ulcerative
     Route: 030
     Dates: start: 20180329, end: 20240413
  2. SIMPONI [Suspect]
     Active Substance: GOLIMUMAB
  3. SERTRALINE BIOGARAN 50 mg, capsule [Concomitant]
     Indication: Product used for unknown indication
  4. SERTRALINE BIOGARAN 25 mg, capsule [Concomitant]
     Indication: Product used for unknown indication
  5. PRAZEPAM [Concomitant]
     Active Substance: PRAZEPAM
     Indication: Product used for unknown indication

REACTIONS (1)
  - Pneumonia [Recovered/Resolved]

NARRATIVE: CASE EVENT DATE: 20210101
